FAERS Safety Report 9508287 (Version 2)
Quarter: 2013Q3

REPORT INFORMATION
  Report Type: Spontaneous
  Country: US (occurrence: US)
  Receive Date: 20130909
  Receipt Date: 20130924
  Transmission Date: 20140515
  Serious: No
  Sender: FDA-Public Use
  Company Number: US-PFIZER INC-2013255537

PATIENT
  Age: 30 Year
  Sex: Male
  Weight: 72.56 kg

DRUGS (1)
  1. CHILDREN^S MOTRIN [Suspect]
     Dosage: UNK, ONCE
     Route: 048
     Dates: start: 20130628, end: 20130628

REACTIONS (3)
  - Throat irritation [Recovered/Resolved]
  - Cough [Recovered/Resolved]
  - Therapeutic response increased [Unknown]
